FAERS Safety Report 15272906 (Version 1)
Quarter: 2018Q3

REPORT INFORMATION
  Report Type: Spontaneous
  Country: US (occurrence: US)
  Receive Date: 20180813
  Receipt Date: 20180813
  Transmission Date: 20181010
  Serious: No
  Sender: FDA-Public Use
  Company Number: US-PURDUE-USA-2018-0143012

PATIENT
  Sex: Male

DRUGS (1)
  1. BUPRENORPHINE (SIMILAR TO NDA 21?306) [Suspect]
     Active Substance: BUPRENORPHINE
     Indication: BACK PAIN
     Dosage: 5 MCG/HR, WEEKLY
     Route: 062
     Dates: start: 20180310

REACTIONS (7)
  - Dysstasia [Unknown]
  - Wrong technique in product usage process [Unknown]
  - Nausea [Recovered/Resolved]
  - Urinary retention [Recovered/Resolved]
  - Headache [Recovered/Resolved]
  - Drug ineffective [Unknown]
  - Dry mouth [Recovered/Resolved]
